FAERS Safety Report 9031736 (Version 1)
Quarter: 2013Q1

REPORT INFORMATION
  Report Type: Spontaneous
  Country: US (occurrence: US)
  Receive Date: 20130124
  Receipt Date: 20130124
  Transmission Date: 20140127
  Serious: No
  Sender: FDA-Public Use
  Company Number: US-MUTUAL PHARMACEUTICAL COMPANY, INC.-PDNS20120001

PATIENT
  Age: 67 None
  Sex: Female
  Weight: 79 kg

DRUGS (7)
  1. PREDNISONE [Suspect]
     Indication: SUDDEN HEARING LOSS
     Route: 048
     Dates: start: 20120314, end: 20120322
  2. PREDNISONE [Suspect]
     Route: 048
     Dates: start: 20120323, end: 20120323
  3. PREDNISONE [Suspect]
     Route: 048
     Dates: start: 20120324, end: 20120324
  4. PREDNISONE [Suspect]
     Route: 048
     Dates: start: 20120325, end: 20120325
  5. PREDNISONE [Suspect]
     Route: 048
     Dates: start: 20120326, end: 20120326
  6. PREDNISONE [Suspect]
     Route: 048
     Dates: start: 20120326, end: 20120327
  7. ATIVAN [Concomitant]
     Indication: INSOMNIA
     Route: 048

REACTIONS (6)
  - Insomnia [Recovered/Resolved]
  - Abdominal pain upper [Recovered/Resolved]
  - Duodenogastric reflux [Recovered/Resolved]
  - Weight increased [Recovered/Resolved]
  - Fungal infection [Recovered/Resolved]
  - Swelling face [Recovered/Resolved]
